FAERS Safety Report 5398962-1 (Version None)
Quarter: 2007Q3

REPORT INFORMATION
  Report Type: 
  Country: None (occurrence: None)
  Receive Date: 20070724
  Receipt Date: 20070724
  Transmission Date: 20080115
  Serious: Yes (Life-Threatening, Disabling)
  Sender: FDA-Public Use
  Company Number: None

PATIENT
  Sex: Female
  Weight: 104 kg

DRUGS (3)
  1. DEPODUR [Suspect]
     Indication: KNEE ARTHROPLASTY
     Dosage: 10 MG ONCE EPIDURAL
     Route: 008
     Dates: start: 20070312, end: 20070312
  2. DEPODUR [Suspect]
     Indication: PAIN MANAGEMENT
     Dosage: 10 MG ONCE EPIDURAL
     Route: 008
     Dates: start: 20070312, end: 20070312
  3. DEPODUR [Suspect]
     Indication: POSTOPERATIVE CARE
     Dosage: 10 MG ONCE EPIDURAL
     Route: 008
     Dates: start: 20070312, end: 20070312

REACTIONS (1)
  - RESPIRATORY DEPRESSION [None]
